FAERS Safety Report 6747857-7 (Version None)
Quarter: 2010Q2

REPORT INFORMATION
  Report Type: 
  Country: None (occurrence: None)
  Receive Date: 20100528
  Receipt Date: 20100518
  Transmission Date: 20101027
  Serious: Yes (Death, Other)
  Sender: FDA-Public Use
  Company Number: US-JNJCH-2010007312

PATIENT
  Age: 51 Year
  Sex: Male
  Weight: 68 kg

DRUGS (2)
  1. ROLAIDS [Suspect]
     Indication: DYSPEPSIA
     Dosage: TEXT:ONE AS NEEDED
     Route: 048
     Dates: start: 20100302, end: 20100316
  2. TOPROL-XL [Concomitant]
     Indication: CARDIAC DISORDER
     Dosage: TEXT:200MG  ONCE DAILY
     Route: 065

REACTIONS (5)
  - DEATH [None]
  - DEHYDRATION [None]
  - DIARRHOEA [None]
  - DYSURIA [None]
  - MALAISE [None]
